FAERS Safety Report 4805178-3 (Version None)
Quarter: 2005Q4

REPORT INFORMATION
  Report Type: 
  Country: None (occurrence: None)
  Receive Date: 20051017
  Receipt Date: 20050930
  Transmission Date: 20060501
  Serious: Yes (Death, Hospitalization)
  Sender: FDA-Public Use
  Company Number: US-2005-006864

PATIENT
  Age: 50 Year
  Sex: Female

DRUGS (3)
  1. BETASERON (INTERFERON BETA - 1B) INJECTION, 250UG [Suspect]
     Indication: RELAPSING-REMITTING MULTIPLE SCLEROSIS
     Dosage: 8 MIU, EVERY 2D, SUBCUTANEOUS
     Route: 058
     Dates: start: 20031010, end: 20041114
  2. BETASERON (INTERFERON BETA - 1B) INJECTION, 250UG [Suspect]
     Indication: RELAPSING-REMITTING MULTIPLE SCLEROSIS
     Dosage: 8 MIU, EVERY 2D, SUBCUTANEOUS
     Route: 058
     Dates: start: 20041130
  3. ANTIHYPERTENSIVES [Concomitant]

REACTIONS (4)
  - ACUTE RESPIRATORY FAILURE [None]
  - FLUID RETENTION [None]
  - OBESITY [None]
  - SLEEP APNOEA SYNDROME [None]
